FAERS Safety Report 10628400 (Version 1)
Quarter: 2014Q4

REPORT INFORMATION
  Report Type: Spontaneous
  Country: US (occurrence: US)
  Receive Date: 20141205
  Receipt Date: 20141205
  Transmission Date: 20150529
  Serious: No
  Sender: FDA-Public Use
  Company Number: US-BRISTOL-MYERS SQUIBB COMPANY-21435086

PATIENT
  Age: 61 Year
  Sex: Female

DRUGS (3)
  1. CLONAZEPAM. [Suspect]
     Active Substance: CLONAZEPAM
     Dates: start: 20140825
  2. ABILIFY [Suspect]
     Active Substance: ARIPIPRAZOLE
     Dosage: DOSE REDUCED TO 2MG.
     Dates: start: 20140825
  3. CELEXA [Suspect]
     Active Substance: CITALOPRAM HYDROBROMIDE
     Dosage: PILLS.
     Dates: start: 20140825

REACTIONS (3)
  - Dizziness [Unknown]
  - Insomnia [Unknown]
  - Balance disorder [Unknown]
